FAERS Safety Report 24420288 (Version 2)
Quarter: 2024Q4

REPORT INFORMATION
  Report Type: Spontaneous
  Country: US (occurrence: US)
  Receive Date: 20241010
  Receipt Date: 20241021
  Transmission Date: 20250114
  Serious: Yes (Hospitalization, Other)
  Sender: ABBVIE
  Company Number: US-ABBVIE-5956552

PATIENT
  Sex: Female

DRUGS (1)
  1. HUMIRA [Suspect]
     Active Substance: ADALIMUMAB
     Indication: Psoriatic arthropathy
     Dosage: FIRST ADMIN DATE: 2017 OR 2018
     Route: 058
     Dates: start: 2017

REACTIONS (6)
  - Dehydration [Unknown]
  - Influenza [Unknown]
  - Product residue present [Unknown]
  - Weight decreased [Unknown]
  - Colitis ulcerative [Unknown]
  - Colectomy [Unknown]
